FAERS Safety Report 12707138 (Version 6)
Quarter: 2016Q4

REPORT INFORMATION
  Report Type: Report from Study
  Country: US (occurrence: US)
  Receive Date: 20160901
  Receipt Date: 20161117
  Transmission Date: 20170207
  Serious: No
  Sender: FDA-Public Use
  Company Number: PHEH2016US022088

PATIENT
  Age: 33 Year
  Sex: Female
  Weight: 106.58 kg

DRUGS (7)
  1. GILENYA [Suspect]
     Active Substance: FINGOLIMOD HYDROCHLORIDE
     Indication: RELAPSING-REMITTING MULTIPLE SCLEROSIS
     Dosage: 0.5 MG, QD, DURING SECOND TRIMESTER
     Route: 048
     Dates: start: 20131024, end: 20160725
  2. MULTI-VIT [Concomitant]
     Active Substance: VITAMINS
     Indication: PREGNANCY
     Dosage: 2 DF (PILLS), QD, DURING 2ND AND 3RD TRIMESTER
     Route: 048
  3. EXCEDRIN [Concomitant]
     Active Substance: ACETAMINOPHEN\ASPIRIN\CAFFEINE
     Indication: MIGRAINE
     Dosage: 750 MG, TID, DURING FIRST TRIMESTER
     Route: 048
  4. GABAPENTIN. [Concomitant]
     Active Substance: GABAPENTIN
     Indication: PRODUCT USED FOR UNKNOWN INDICATION
     Dosage: DURING THE FIRST TRIMESTER
     Route: 065
     Dates: start: 20140101, end: 20160825
  5. VENLAFAXINE HYDROCHLORIDE. [Concomitant]
     Active Substance: VENLAFAXINE HYDROCHLORIDE
     Indication: ANXIETY
     Dosage: 37.5 MG, QD
     Route: 048
  6. IBUPROFEN. [Concomitant]
     Active Substance: IBUPROFEN
     Indication: MIGRAINE
     Dosage: 600-1000 MG, PRN, PRIOR TO PREGNANCY, 1ST AND 2ND TRIMESTER
     Route: 048
  7. TYLENOL [Suspect]
     Active Substance: ACETAMINOPHEN
     Indication: MIGRAINE
     Dosage: DURING 2ND AND 3RD TRIMESTER
     Route: 048

REACTIONS (2)
  - Uterine leiomyoma [Unknown]
  - Maternal exposure during pregnancy [Unknown]

NARRATIVE: CASE EVENT DATE: 20160725
